FAERS Safety Report 7590941-9 (Version None)
Quarter: 2011Q3

REPORT INFORMATION
  Report Type: 
  Country: None (occurrence: None)
  Receive Date: 20110705
  Receipt Date: 20110624
  Transmission Date: 20111222
  Serious: Yes (Other)
  Sender: FDA-Public Use
  Company Number: PHHY2011CA56555

PATIENT
  Sex: Female

DRUGS (2)
  1. AFINITOR [Suspect]
     Indication: CARCINOID TUMOUR PULMONARY
     Dosage: 10 MG, QD
     Route: 048
  2. SANDOSTATIN [Suspect]
     Indication: CARCINOID TUMOUR PULMONARY
     Dosage: UNK
     Route: 058

REACTIONS (1)
  - DYSPNOEA [None]
